FAERS Safety Report 5300592-4 (Version None)
Quarter: 2007Q2

REPORT INFORMATION
  Report Type: 
  Country: None (occurrence: None)
  Receive Date: 20070418
  Receipt Date: 20070410
  Transmission Date: 20071010
  Serious: Yes (Hospitalization)
  Sender: FDA-Public Use
  Company Number: GB-GLAXOSMITHKLINE-B0466577A

PATIENT
  Age: 51 Year
  Sex: Female
  Weight: 120 kg

DRUGS (9)
  1. AVANDAMET [Suspect]
     Route: 048
     Dates: start: 20070305, end: 20070312
  2. INSULIN [Suspect]
     Route: 058
     Dates: start: 20061101
  3. ASPIRIN [Concomitant]
     Dosage: 75MG PER DAY
     Route: 048
  4. ATENOLOL [Concomitant]
     Dosage: 50MG PER DAY
     Route: 048
  5. BENDROFLUAZIDE [Concomitant]
     Dosage: 2.5MG PER DAY
     Route: 048
  6. GLICLAZIDE [Concomitant]
     Dosage: 160MG TWICE PER DAY
     Route: 048
  7. LOSARTAN POSTASSIUM [Concomitant]
     Dosage: 100MG PER DAY
     Route: 048
  8. PARACETAMOL [Concomitant]
     Route: 048
  9. SIMVASTATIN [Concomitant]
     Dosage: 40MG PER DAY
     Route: 048

REACTIONS (1)
  - DYSPNOEA [None]
